FAERS Safety Report 8057052-X (Version None)
Quarter: 2012Q1

REPORT INFORMATION
  Report Type: 
  Country: None (occurrence: None)
  Receive Date: 20120119
  Receipt Date: 20120116
  Transmission Date: 20120608
  Serious: Yes (Life-Threatening, Hospitalization)
  Sender: FDA-Public Use
  Company Number: DE-B.I. PHARMACEUTICALS,INC./RIDGEFIELD-2012-DE-00147DE

PATIENT
  Age: 75 Year
  Sex: Female

DRUGS (4)
  1. PRAMIPEXOLE DIHYDROCHLORIDE [Suspect]
     Indication: PARKINSON'S DISEASE
     Dosage: APPROX. 1.84 MG
     Dates: start: 20111101, end: 20120103
  2. PANTOPRAZOLE [Concomitant]
     Indication: GASTROOESOPHAGEAL REFLUX DISEASE
  3. URSO FALK [Concomitant]
     Indication: LIVER DISORDER
  4. PANTOPRAZOLE [Concomitant]
     Indication: VARICES OESOPHAGEAL

REACTIONS (3)
  - PNEUMONIA PRIMARY ATYPICAL [None]
  - DYSPNOEA [None]
  - COUGH [None]
